FAERS Safety Report 7275565-5 (Version None)
Quarter: 2011Q1

REPORT INFORMATION
  Report Type: 
  Country: None (occurrence: None)
  Receive Date: 20110204
  Receipt Date: 20110124
  Transmission Date: 20110831
  Serious: Yes (Other)
  Sender: FDA-Public Use
  Company Number: DK-NAPPMUNDI-GBR-2010-0006440

PATIENT
  Sex: Female
  Weight: 70 kg

DRUGS (3)
  1. LEVOTHYROXINE [Concomitant]
     Dosage: UNK
     Route: 065
  2. ACETAMINOPHEN [Concomitant]
     Indication: PAIN
     Dosage: 500 MG, UNK
     Route: 048
  3. NORSPAN DEPOTPLASTRE 10 UG/T [Suspect]
     Indication: NEURALGIA
     Dosage: 10 MCG, Q1H
     Route: 062
     Dates: start: 20100331

REACTIONS (5)
  - ASPARTATE AMINOTRANSFERASE INCREASED [None]
  - GAMMA-GLUTAMYLTRANSFERASE INCREASED [None]
  - BLOOD ALKALINE PHOSPHATASE INCREASED [None]
  - MICTURITION URGENCY [None]
  - ALANINE AMINOTRANSFERASE INCREASED [None]
